FAERS Safety Report 4374499-3 (Version None)
Quarter: 2004Q2

REPORT INFORMATION
  Report Type: 
  Country: None (occurrence: None)
  Receive Date: 20040602
  Receipt Date: 20040304
  Transmission Date: 20050107
  Serious: No
  Sender: FDA-Public Use
  Company Number: 200414456BWH

PATIENT
  Age: 56 Year
  Sex: Male

DRUGS (4)
  1. LEVITRA [Suspect]
     Dosage: 20 MG TOTAL DAILY ORAL
     Route: 048
     Dates: start: 20040223
  2. ... [Suspect]
     Dosage: 20  MG TOTAL DAILY ORAL
     Route: 048
  3. ZOCOR [Concomitant]
  4. GLUCOTROL [Concomitant]

REACTIONS (1)
  - ERECTILE DYSFUNCTION [None]
